FAERS Safety Report 12649340 (Version 1)
Quarter: 2016Q3

REPORT INFORMATION
  Report Type: Spontaneous
  Country: US (occurrence: US)
  Receive Date: 20160812
  Receipt Date: 20160812
  Transmission Date: 20161109
  Serious: Yes (Hospitalization, Other)
  Sender: FDA-Public Use
  Company Number: US-PRINSTON PHARMACEUTICAL INC.-2016PRN00200

PATIENT
  Sex: Male
  Weight: 185.94 kg

DRUGS (5)
  1. ALLOPURINOL. [Concomitant]
     Active Substance: ALLOPURINOL
     Indication: GOUT
     Dosage: 300 MG, 1X/DAY
     Dates: start: 2001
  2. DIAZEPAM. [Concomitant]
     Active Substance: DIAZEPAM
     Indication: ANXIETY
     Dosage: 10 MG, UNK
     Dates: start: 1993
  3. BENAZEPRIL HYDROCHLORIDE. [Suspect]
     Active Substance: BENAZEPRIL HYDROCHLORIDE
     Dosage: 40 MG, 1X/DAY
  4. BENAZEPRIL HYDROCHLORIDE. [Suspect]
     Active Substance: BENAZEPRIL HYDROCHLORIDE
     Indication: BLOOD PRESSURE MEASUREMENT
     Dosage: 20 MG, 1X/DAY
     Dates: start: 2001
  5. LYRICA [Suspect]
     Active Substance: PREGABALIN
     Indication: NEUROPATHY PERIPHERAL
     Dosage: 100 MG, 3X/DAY
     Route: 048

REACTIONS (17)
  - Cardiovascular disorder [Unknown]
  - Blood cholesterol increased [Unknown]
  - Fluid retention [Unknown]
  - Cognitive disorder [Unknown]
  - Peripheral swelling [Unknown]
  - Sleep disorder [Not Recovered/Not Resolved]
  - Pneumonia [Unknown]
  - Infection [Recovered/Resolved]
  - Dyspnoea [Unknown]
  - Pulmonary congestion [Unknown]
  - Chronic obstructive pulmonary disease [Unknown]
  - Cardiac failure congestive [Unknown]
  - Neuropathy peripheral [Not Recovered/Not Resolved]
  - Cellulitis [Unknown]
  - Wound [Recovered/Resolved]
  - Unevaluable event [Unknown]
  - Hypertension [Unknown]

NARRATIVE: CASE EVENT DATE: 2001
